FAERS Safety Report 9701791 (Version 3)
Quarter: 2013Q4

REPORT INFORMATION
  Report Type: Spontaneous
  Country: JP (occurrence: JP)
  Receive Date: 20131121
  Receipt Date: 20131213
  Transmission Date: 20140711
  Serious: Yes (Death)
  Sender: FDA-Public Use
  Company Number: PHHY2013JP132881

PATIENT
  Age: 69 Year
  Sex: Female

DRUGS (5)
  1. NEORAL [Suspect]
     Indication: ERYTHEMA
     Dosage: 200 MG, DAILY
     Route: 048
  2. NEORAL [Suspect]
     Indication: OFF LABEL USE
  3. PREDNISOLONE [Suspect]
     Dosage: 50 MG, DAILY
     Route: 048
  4. GLOBULIN [Suspect]
     Route: 042
  5. MIZORIBINE [Suspect]
     Dosage: 500 MG, BIW
     Route: 048

REACTIONS (3)
  - Pneumonia [Fatal]
  - Renal impairment [Recovered/Resolved]
  - Erythema [Recovering/Resolving]
